FAERS Safety Report 7081506-6 (Version None)
Quarter: 2010Q4

REPORT INFORMATION
  Report Type: 
  Country: None (occurrence: None)
  Receive Date: 20101025
  Receipt Date: 20101018
  Transmission Date: 20110411
  Serious: Yes (Hospitalization, Other)
  Sender: FDA-Public Use
  Company Number: 20108323

PATIENT
  Age: 45 Year
  Sex: Male

DRUGS (9)
  1. GABALIN INTRATHECAL (BACLOFEN INJECTION) [Suspect]
     Indication: MUSCLE SPASTICITY
     Dosage: DAILY, INTRATHECAL
     Route: 037
  2. RIVOTRIL [Concomitant]
  3. ARTANE [Concomitant]
  4. DANTRIUM [Concomitant]
  5. TEMELIN [Concomitant]
  6. CAFFEINE [Concomitant]
  7. SODIUM BENZOATE [Concomitant]
  8. MEXITIL [Concomitant]
  9. BUP-4 [Concomitant]

REACTIONS (3)
  - PELVIC FRACTURE [None]
  - ROAD TRAFFIC ACCIDENT [None]
  - SUICIDE ATTEMPT [None]
